FAERS Safety Report 26008569 (Version 1)
Quarter: 2025Q4

REPORT INFORMATION
  Report Type: Spontaneous
  Country: RS (occurrence: RS)
  Receive Date: 20251106
  Receipt Date: 20251106
  Transmission Date: 20260117
  Serious: Yes (Other)
  Sender: SANDOZ
  Company Number: RS-SANDOZ-SDZ2025RS082044

PATIENT
  Age: 68 Year
  Sex: Male

DRUGS (1)
  1. LEUPROLIDE ACETATE [Suspect]
     Active Substance: LEUPROLIDE ACETATE
     Indication: Prostate cancer
     Dosage: 5 MG ONE SINGLE DOSE
     Route: 058
     Dates: start: 20250807

REACTIONS (2)
  - Prostatic specific antigen increased [Recovering/Resolving]
  - Blood testosterone increased [Recovering/Resolving]

NARRATIVE: CASE EVENT DATE: 20250101
